FAERS Safety Report 17160515 (Version 1)
Quarter: 2019Q4

REPORT INFORMATION
  Report Type: Report from Study
  Country: CN (occurrence: CN)
  Receive Date: 20191216
  Receipt Date: 20191216
  Transmission Date: 20200122
  Serious: Yes (Other)
  Sender: FDA-Public Use
  Company Number: CN-GILEAD-2019-0442767

PATIENT

DRUGS (2)
  1. ADEFOVIR DIPIVOXIL. [Suspect]
     Active Substance: ADEFOVIR DIPIVOXIL
     Indication: CHRONIC HEPATITIS B
     Route: 065
  2. TELBIVUDINE [Concomitant]
     Active Substance: TELBIVUDINE
     Indication: CHRONIC HEPATITIS B

REACTIONS (2)
  - Hepatitis B DNA assay positive [Unknown]
  - Drug ineffective [Unknown]
